FAERS Safety Report 12389941 (Version 1)
Quarter: 2016Q2

REPORT INFORMATION
  Report Type: Spontaneous
  Country: FR (occurrence: FR)
  Receive Date: 20160520
  Receipt Date: 20160520
  Transmission Date: 20160815
  Serious: Yes (Hospitalization)
  Sender: FDA-Public Use
  Company Number: PHHY2016FR067544

PATIENT
  Age: 2 Year
  Sex: Male
  Weight: 12.5 kg

DRUGS (4)
  1. CEFOTAXIME [Suspect]
     Active Substance: CEFOTAXIME SODIUM
     Dosage: 200 MG/KG, QID
     Route: 042
  2. AMIKLIN [Concomitant]
     Active Substance: AMIKACIN SULFATE
     Indication: LUNG ABSCESS
     Route: 065
  3. CEFOTAXIME [Suspect]
     Active Substance: CEFOTAXIME SODIUM
     Indication: LUNG ABSCESS
     Dosage: UNK
     Route: 042
     Dates: start: 20160122, end: 20160217
  4. VANCOMYCIN SANDOZ [Suspect]
     Active Substance: VANCOMYCIN
     Indication: LUNG ABSCESS
     Dosage: 40 MG/KG, QID
     Route: 042
     Dates: start: 20160125, end: 20160215

REACTIONS (4)
  - Histiocytosis haematophagic [Recovering/Resolving]
  - Eyelid oedema [Recovering/Resolving]
  - Urticaria [Recovering/Resolving]
  - Rash maculo-papular [Recovering/Resolving]

NARRATIVE: CASE EVENT DATE: 20160207
